FAERS Safety Report 5426062-0 (Version None)
Quarter: 2007Q3

REPORT INFORMATION
  Report Type: 
  Country: None (occurrence: None)
  Receive Date: 20070824
  Receipt Date: 20070824
  Transmission Date: 20080115
  Serious: Yes (Hospitalization)
  Sender: FDA-Public Use
  Company Number: None

PATIENT
  Age: 63 Year
  Sex: Male

DRUGS (1)
  1. NAPROXEN [Suspect]
     Indication: OSTEOARTHRITIS
     Dosage: 500MG BID PO
     Route: 048
     Dates: start: 20030601, end: 20070726

REACTIONS (4)
  - ANAEMIA [None]
  - GASTRIC HAEMORRHAGE [None]
  - GASTRITIS [None]
  - GASTROINTESTINAL ULCER [None]
